FAERS Safety Report 10279755 (Version 1)
Quarter: 2014Q3

REPORT INFORMATION
  Report Type: Spontaneous
  Country: CH (occurrence: None)
  Receive Date: 20140702
  Receipt Date: 20140702
  Transmission Date: 20150326
  Serious: Yes (Hospitalization)
  Sender: FDA-Public Use
  Company Number: 20140362

PATIENT
  Age: 61 Year
  Sex: Female
  Weight: 80 kg

DRUGS (1)
  1. FERINJECT [Suspect]
     Active Substance: FERRIC CARBOXYMALTOSE
     Indication: IRON DEFICIENCY ANAEMIA
     Route: 040
     Dates: start: 20140415, end: 20140415

REACTIONS (7)
  - Hypertensive heart disease [None]
  - Coeliac disease [None]
  - Asthenia [None]
  - Haemorrhoids [None]
  - Chills [None]
  - Malaise [None]
  - Diverticulum intestinal [None]

NARRATIVE: CASE EVENT DATE: 20140415
